FAERS Safety Report 24744331 (Version 2)
Quarter: 2025Q1

REPORT INFORMATION
  Report Type: Report from Study
  Country: CO (occurrence: CO)
  Receive Date: 20241217
  Receipt Date: 20250115
  Transmission Date: 20250409
  Serious: Yes (Hospitalization)
  Sender: NOVARTIS
  Company Number: CO-002147023-NVSC2024CO234594

PATIENT
  Sex: Female
  Weight: 46 kg

DRUGS (2)
  1. KISQALI [Suspect]
     Active Substance: RIBOCICLIB
     Indication: Hormone receptor positive HER2 negative breast cancer
     Dosage: 600 MG, QD
     Route: 048
     Dates: start: 20241202
  2. KISQALI [Suspect]
     Active Substance: RIBOCICLIB
     Indication: Breast cancer metastatic

REACTIONS (15)
  - Dizziness [Unknown]
  - Malaise [Unknown]
  - Diarrhoea [Unknown]
  - Mouth ulceration [Unknown]
  - Gastrointestinal pain [Unknown]
  - Rash [Unknown]
  - Vomiting [Unknown]
  - Ill-defined disorder [Unknown]
  - Back pain [Unknown]
  - Drug ineffective [Unknown]
  - Weight decreased [Unknown]
  - Gastric haemorrhage [Unknown]
  - Fatigue [Unknown]
  - Asthenia [Unknown]
  - General physical health deterioration [Unknown]
